FAERS Safety Report 4887318-3 (Version None)
Quarter: 2005Q4

REPORT INFORMATION
  Report Type: 
  Country: None (occurrence: None)
  Receive Date: 20051220
  Receipt Date: 20050915
  Transmission Date: 20060501
  Serious: Yes (Other)
  Sender: FDA-Public Use
  Company Number: HQWYE552620SEP05

PATIENT
  Age: 35 Year
  Sex: Female
  Weight: 88.53 kg

DRUGS (3)
  1. EFFEXOR XR [Suspect]
     Dosage: 75 MG 1 X PER 1 DAY, ORAL
     Route: 048
     Dates: start: 20050301
  2. ALCOHOL (ETHANOL) [Suspect]
  3. SINGULAIR [Concomitant]

REACTIONS (5)
  - ALCOHOL INTERACTION [None]
  - AMNESIA [None]
  - SLUGGISHNESS [None]
  - SOMNOLENCE [None]
  - VOMITING PROJECTILE [None]
